FAERS Safety Report 8484698-7 (Version None)
Quarter: 2012Q3

REPORT INFORMATION
  Report Type: 
  Country: None (occurrence: None)
  Receive Date: 20120703
  Receipt Date: 20120504
  Transmission Date: 20120928
  Serious: No
  Sender: FDA-Public Use
  Company Number: US-TEVA-336796USA

PATIENT

DRUGS (1)
  1. NUVIGIL [Suspect]

REACTIONS (1)
  - URINE COLOUR ABNORMAL [None]
